FAERS Safety Report 20761972 (Version 5)
Quarter: 2024Q3

REPORT INFORMATION
  Report Type: Report from Study
  Country: US (occurrence: US)
  Receive Date: 20220428
  Receipt Date: 20240806
  Transmission Date: 20241016
  Serious: Yes (Other)
  Sender: ABBVIE
  Company Number: US-ABBVIE-22K-163-4332342-00

PATIENT
  Sex: Male

DRUGS (5)
  1. HUMIRA [Suspect]
     Active Substance: ADALIMUMAB
     Indication: Rheumatoid arthritis
     Dosage: CITRATE FREE
     Route: 058
     Dates: start: 20191104
  2. HUMIRA [Suspect]
     Active Substance: ADALIMUMAB
     Dosage: CITRATE FREE
     Route: 058
  3. HUMIRA [Suspect]
     Active Substance: ADALIMUMAB
     Dosage: CITRATE FREE
     Route: 058
     Dates: start: 20191120
  4. METHOTREXATE [Concomitant]
     Active Substance: METHOTREXATE
     Indication: Product used for unknown indication
     Dates: end: 2022
  5. FOLIC ACID [Concomitant]
     Active Substance: FOLIC ACID
     Indication: Product used for unknown indication

REACTIONS (16)
  - Neck mass [Unknown]
  - Malignant melanoma [Recovered/Resolved]
  - Scab [Unknown]
  - Breakthrough pain [Unknown]
  - Skin tightness [Unknown]
  - Renal function test abnormal [Unknown]
  - Liver function test increased [Unknown]
  - Skin discolouration [Unknown]
  - Stress [Recovered/Resolved]
  - Eczema [Unknown]
  - Arthritis [Unknown]
  - Peripheral swelling [Unknown]
  - Stress [Unknown]
  - Pain [Unknown]
  - COVID-19 [Recovering/Resolving]
  - Arthralgia [Not Recovered/Not Resolved]

NARRATIVE: CASE EVENT DATE: 20220101
